FAERS Safety Report 8030308-2 (Version None)
Quarter: 2012Q1

REPORT INFORMATION
  Report Type: 
  Country: None (occurrence: None)
  Receive Date: 20120109
  Receipt Date: 20120106
  Transmission Date: 20120608
  Serious: Yes (Death)
  Sender: FDA-Public Use
  Company Number: PHFR2011GB007405

PATIENT
  Sex: Male

DRUGS (8)
  1. CITALOPRAM HYDROBROMIDE [Concomitant]
     Indication: DEPRESSION
  2. PROPRANOLOL [Concomitant]
     Dates: start: 20110901
  3. PROPRANOLOL [Concomitant]
     Indication: ANXIETY
     Dosage: 160 MG, DAILY
     Route: 048
  4. CLOZARIL [Suspect]
     Indication: SCHIZOPHRENIA, PARANOID TYPE
     Dosage: 375 MG, DAILY
     Route: 048
     Dates: start: 20030114
  5. ZOPICLONE [Concomitant]
     Indication: INSOMNIA
     Dosage: 7.5 MG, DAILY
     Route: 048
     Dates: start: 20070101
  6. CLOZARIL [Suspect]
     Dosage: 350 MG, DAILY
  7. AMISULPRIDE [Concomitant]
     Dosage: 200 MG DAILY
     Route: 048
  8. CITALOPRAM HYDROBROMIDE [Concomitant]
     Indication: OBSESSIVE-COMPULSIVE DISORDER
     Dosage: 30 MG, DAILY
     Route: 048
     Dates: start: 20080301

REACTIONS (1)
  - DEATH [None]
